FAERS Safety Report 10377793 (Version 1)
Quarter: 2014Q1

REPORT INFORMATION
  Report Type: Spontaneous
  Country: US (occurrence: None)
  Receive Date: 20140306
  Receipt Date: 20140306
  Transmission Date: 20141002
  Serious: Yes (Hospitalization)
  Sender: FDA-Public Use
  Company Number: 163-21880-13031558

PATIENT
  Age: 63 Year
  Sex: Female

DRUGS (15)
  1. REVLIMID (LENALIDOMIDE) (10 MILLIGRAM, CAPSULES) [Suspect]
     Indication: PLASMA CELL MYELOMA
     Dosage: 5 MG, 1 IN 2 D, PO
     Route: 048
     Dates: start: 20101025
  2. VALACYCLOVIR (VALACICLOVIR HYDROCHLORIDE) (500 MILLIGRAM, TABLETS) [Concomitant]
  3. PRED FORTE (PREDNISOLONE ACETATE) (SUSPENSION) [Concomitant]
  4. ACYCLOVIR (ACICLOVIR) (400 MILLIGRAM, TABLETS) [Concomitant]
  5. ZIRGAN (GANCICLOVIR) (0.15  PERCENT, GEL) [Concomitant]
  6. ERYTHROMYCIN (ERYTHROMYCIN) (OINTMENT) [Concomitant]
  7. HOMATROPINE (HOMATROPINE) (SOLUTION) [Concomitant]
  8. PANTOPRAZOLE (PANTOPRAZOLE) (TABLETS) [Concomitant]
  9. ZYVOX (LINEZOLID) (TABLETS) [Concomitant]
  10. BAYER LOW (ACETYLSALICYLIC ACID) (ENTERIC-COATED TABLETS) [Concomitant]
  11. PLAVIX (CLOPIDOGREL SULFATE) (TABLETS) [Concomitant]
  12. CIPRO (CIPROFLOXACIN) (TABLETS) [Concomitant]
  13. METOPROLOL (METOPROLOL) (TABLETS) [Concomitant]
  14. FENTANYL (FENTANYL) (UNKNOWN) (FENTANYL) [Concomitant]
  15. TUMS (CALCIUM CARBONATE) (CHEWABLE TABLET) [Concomitant]

REACTIONS (1)
  - Pneumonia [None]
